FAERS Safety Report 7036424-6 (Version None)
Quarter: 2010Q4

REPORT INFORMATION
  Report Type: 
  Country: None (occurrence: None)
  Receive Date: 20101010
  Receipt Date: 20101005
  Transmission Date: 20110411
  Serious: Yes (Hospitalization)
  Sender: FDA-Public Use
  Company Number: KR-BRISTOL-MYERS SQUIBB COMPANY-15324254

PATIENT
  Age: 29 Year
  Sex: Male

DRUGS (2)
  1. ARIPIPRAZOLE [Suspect]
     Indication: SCHIZOPHRENIA
     Dosage: DOSAGE:20MG ON 28SEP10,INCREASED TO 25MG ON 04OCT10
     Dates: start: 20100906
  2. RIVOTRIL [Concomitant]
     Dates: start: 20080730

REACTIONS (1)
  - PSYCHOTIC DISORDER [None]
